FAERS Safety Report 12090952 (Version 1)
Quarter: 2016Q1

REPORT INFORMATION
  Report Type: Spontaneous
  Country: US (occurrence: US)
  Receive Date: 20160218
  Receipt Date: 20160218
  Transmission Date: 20160526
  Serious: No
  Sender: FDA-Public Use
  Company Number: US-PFIZER INC-2016086954

PATIENT
  Sex: Male
  Weight: 91 kg

DRUGS (8)
  1. MULTIVITAMINS [Concomitant]
     Active Substance: VITAMINS
  2. FISH OIL [Concomitant]
     Active Substance: FISH OIL
  3. GABAPENTIN. [Suspect]
     Active Substance: GABAPENTIN
     Indication: RADICULOPATHY
     Dosage: 1500 MG, DAILY
     Route: 048
     Dates: start: 2013, end: 2014
  4. COENZYME Q10 [Concomitant]
     Active Substance: UBIDECARENONE
  5. CLARITIN [Concomitant]
     Active Substance: LORATADINE
     Indication: HYPERSENSITIVITY
     Dosage: 10 MG, UNK
  6. NAPROXEN. [Concomitant]
     Active Substance: NAPROXEN
     Indication: ARTHRITIS
     Dosage: 500 MG, UNK
  7. VITAMIN D [Concomitant]
     Active Substance: CHOLECALCIFEROL
  8. CALCIUM [Concomitant]
     Active Substance: CALCIUM

REACTIONS (5)
  - Feeling abnormal [Recovered/Resolved]
  - Product use issue [Unknown]
  - Mental disorder [Recovered/Resolved]
  - Disturbance in attention [Recovered/Resolved]
  - Vision blurred [Recovered/Resolved]

NARRATIVE: CASE EVENT DATE: 2013
